FAERS Safety Report 18067058 (Version 2)
Quarter: 2020Q3

REPORT INFORMATION
  Report Type: Spontaneous
  Country: JP (occurrence: JP)
  Receive Date: 20200724
  Receipt Date: 20200817
  Transmission Date: 20201103
  Serious: Yes (Hospitalization)
  Sender: FDA-Public Use
  Company Number: JP-TAIHO ONCOLOGY  INC-JPTT200191

PATIENT
  Age: 71 Year
  Sex: Male

DRUGS (3)
  1. LONSURF [Suspect]
     Active Substance: TIPIRACIL HYDROCHLORIDE\TRIFLURIDINE
     Indication: GASTRIC CANCER RECURRENT
     Dosage: DETAILS NOT REPORTED, 3 CYCLES
     Route: 048
  2. LONSURF [Suspect]
     Active Substance: TIPIRACIL HYDROCHLORIDE\TRIFLURIDINE
     Dosage: DETAILS NOT REPORTED
     Route: 048
  3. LONSURF [Suspect]
     Active Substance: TIPIRACIL HYDROCHLORIDE\TRIFLURIDINE
     Dosage: DETAILS NOT REPORTED
     Route: 048

REACTIONS (4)
  - Adrenal insufficiency [Unknown]
  - Hyponatraemia [Recovering/Resolving]
  - Decreased appetite [Recovering/Resolving]
  - Malaise [Recovering/Resolving]
